FAERS Safety Report 13796258 (Version 5)
Quarter: 2022Q1

REPORT INFORMATION
  Report Type: Report from Study
  Country: US (occurrence: US)
  Receive Date: 20170726
  Receipt Date: 20220203
  Transmission Date: 20220424
  Serious: Yes (Other)
  Sender: FDA-Public Use
  Company Number: US-JAZZ-2017-US-009124

PATIENT
  Age: 26 Year
  Sex: Female
  Weight: 99.8 kg

DRUGS (14)
  1. XYREM [Suspect]
     Active Substance: SODIUM OXYBATE
     Indication: Narcolepsy
     Dosage: 2.25 GRAM, BID
     Route: 048
     Dates: start: 201010, end: 201611
  2. XYREM [Suspect]
     Active Substance: SODIUM OXYBATE
     Indication: Cataplexy
     Dosage: 3 GRAM, BID
     Route: 048
     Dates: start: 201611
  3. XYREM [Suspect]
     Active Substance: SODIUM OXYBATE
     Dosage: 4 GRAM, UNKNOWN
     Route: 048
  4. MODAFINIL [Suspect]
     Active Substance: MODAFINIL
     Indication: Product used for unknown indication
     Dosage: UNK
  5. RITALIN [Concomitant]
     Active Substance: METHYLPHENIDATE HYDROCHLORIDE
     Indication: Product used for unknown indication
  6. LORATADINE [Concomitant]
     Active Substance: LORATADINE
     Indication: Product used for unknown indication
  7. BIOTIN [Concomitant]
     Active Substance: BIOTIN
     Indication: Product used for unknown indication
  8. POTASSIUM CHLORIDE [Concomitant]
     Active Substance: POTASSIUM CHLORIDE
     Indication: Product used for unknown indication
  9. TUMS EX [Concomitant]
     Active Substance: CALCIUM CARBONATE
     Indication: Product used for unknown indication
  10. ACETAMINOPHEN [Concomitant]
     Active Substance: ACETAMINOPHEN
     Indication: Product used for unknown indication
  11. VITAMIN B12 [Concomitant]
     Active Substance: CYANOCOBALAMIN
     Indication: Product used for unknown indication
  12. VITAMIN D3 [Concomitant]
     Active Substance: CHOLECALCIFEROL
     Indication: Product used for unknown indication
  13. IBUPROFEN [Concomitant]
     Active Substance: IBUPROFEN
     Indication: Product used for unknown indication
  14. ALEVE [Concomitant]
     Active Substance: NAPROXEN SODIUM
     Indication: Product used for unknown indication

REACTIONS (13)
  - Ovarian cystectomy [Recovered/Resolved]
  - Hypertension [Recovered/Resolved]
  - Nasopharyngitis [Not Recovered/Not Resolved]
  - Ear congestion [Not Recovered/Not Resolved]
  - Oropharyngeal pain [Not Recovered/Not Resolved]
  - Feeling hot [Not Recovered/Not Resolved]
  - Temporomandibular joint syndrome [Unknown]
  - Vitamin B12 decreased [Recovered/Resolved]
  - Respiratory tract congestion [Not Recovered/Not Resolved]
  - Sinus disorder [Not Recovered/Not Resolved]
  - Gastric disorder [Not Recovered/Not Resolved]
  - Tachycardia [Unknown]
  - Headache [Unknown]

NARRATIVE: CASE EVENT DATE: 20170801
